FAERS Safety Report 23824240 (Version 1)
Quarter: 2024Q2

REPORT INFORMATION
  Report Type: Report from Study
  Country: US (occurrence: US)
  Receive Date: 20240507
  Receipt Date: 20240507
  Transmission Date: 20240716
  Serious: Yes (Hospitalization, Other)
  Sender: FDA-Public Use
  Company Number: US-UCBSA-2024002617

PATIENT
  Age: 5 Year
  Sex: Male

DRUGS (2)
  1. FINTEPLA [Suspect]
     Active Substance: FENFLURAMINE
     Indication: Lennox-Gastaut syndrome
     Dosage: 0.7 MILLILITER, 2X/DAY (BID)
     Dates: start: 20220928
  2. FINTEPLA [Suspect]
     Active Substance: FENFLURAMINE
     Dosage: 0.8 MILLILITER, 2X/DAY (BID)
     Route: 048

REACTIONS (6)
  - Gastroenteritis viral [Not Recovered/Not Resolved]
  - Dehydration [Not Recovered/Not Resolved]
  - Aortic valve incompetence [Unknown]
  - Cardiac valve disease [Not Recovered/Not Resolved]
  - Blood pressure systolic increased [Unknown]
  - Pyrexia [Not Recovered/Not Resolved]

NARRATIVE: CASE EVENT DATE: 20240114
